FAERS Safety Report 5601079-1 (Version None)
Quarter: 2008Q1

REPORT INFORMATION
  Report Type: 
  Country: None (occurrence: None)
  Receive Date: 20080118
  Receipt Date: 20080109
  Transmission Date: 20080703
  Serious: Yes (Other)
  Sender: FDA-Public Use
  Company Number: GXKR2008GB00668

PATIENT
  Age: 44 Year
  Sex: Female
  Weight: 58 kg

DRUGS (6)
  1. SERTRALINE [Suspect]
     Dosage: 150 MG, ORAL
     Route: 048
     Dates: start: 20071119
  2. VENLAFAXINE HCL [Suspect]
     Dosage: 75 MG, ORAL
     Route: 048
     Dates: start: 20071108, end: 20071116
  3. DIAZEPAM [Concomitant]
  4. LORAZEPAM [Concomitant]
  5. NITRAZEPAM [Concomitant]
  6. ZOPICLONE (ZOPICLONE) [Concomitant]

REACTIONS (4)
  - COGNITIVE DISORDER [None]
  - COORDINATION ABNORMAL [None]
  - GAIT DISTURBANCE [None]
  - TREMOR [None]
